FAERS Safety Report 14727278 (Version 4)
Quarter: 2018Q4

REPORT INFORMATION
  Report Type: Report from Study
  Country: JP (occurrence: JP)
  Receive Date: 20180406
  Receipt Date: 20181217
  Transmission Date: 20190204
  Serious: Yes (Hospitalization, Other)
  Sender: FDA-Public Use
  Company Number: JP-GLAXOSMITHKLINE-JP2018JPN056741

PATIENT
  Age: 5 Decade
  Sex: Male
  Weight: 95 kg

DRUGS (41)
  1. PREDNISOLONE. [Suspect]
     Active Substance: PREDNISOLONE
     Dosage: 30 MG, 1D
     Route: 048
     Dates: start: 20180531, end: 20180712
  2. PREDNISOLONE. [Suspect]
     Active Substance: PREDNISOLONE
     Dosage: 22.5 MG, 1D
     Route: 048
     Dates: start: 20180810
  3. CARDENALIN [Concomitant]
     Active Substance: DOXAZOSIN MESYLATE
     Dosage: UNK
  4. RABEPRAZOLE SODIUM. [Concomitant]
     Active Substance: RABEPRAZOLE SODIUM
     Dosage: UNK
  5. BAYASPIRIN [Concomitant]
     Active Substance: ASPIRIN
     Dosage: UNK
  6. SENNOSIDE [Concomitant]
     Active Substance: SENNOSIDES
     Dosage: UNK
  7. OMEPRAZOLE. [Concomitant]
     Active Substance: OMEPRAZOLE
     Dosage: UNK
  8. PREDNISOLONE. [Suspect]
     Active Substance: PREDNISOLONE
     Indication: SYSTEMIC LUPUS ERYTHEMATOSUS
     Dosage: UNK
     Route: 048
  9. PREDNISOLONE. [Suspect]
     Active Substance: PREDNISOLONE
     Dosage: 70 MG, 1D
     Route: 048
     Dates: start: 20180222, end: 20180228
  10. SODIUM PICOSULFATE HYDRATE [Concomitant]
     Active Substance: SODIUM PICOSULFATE
     Dosage: UNK
  11. BONVIVA [Concomitant]
     Active Substance: IBANDRONATE SODIUM
     Dosage: UNK
  12. PREDNISOLONE. [Suspect]
     Active Substance: PREDNISOLONE
     Dosage: 60 MG, 1D
     Route: 048
     Dates: start: 20180301, end: 20180307
  13. PREDNISOLONE. [Suspect]
     Active Substance: PREDNISOLONE
     Dosage: 40 MG, 1D
     Route: 048
     Dates: start: 20180329, end: 20180329
  14. PREDNISOLONE. [Suspect]
     Active Substance: PREDNISOLONE
     Dosage: 60 MG, 1D
     Route: 048
     Dates: start: 20180330, end: 20180402
  15. PREDNISOLONE. [Suspect]
     Active Substance: PREDNISOLONE
     Dosage: 40 MG, 1D
     Route: 048
     Dates: start: 20180403, end: 20180530
  16. DAIKENCHUTO [Concomitant]
     Active Substance: HERBALS
     Dosage: UNK
  17. AZELNIDIPINE [Concomitant]
     Active Substance: AZELNIDIPINE
     Dosage: UNK
  18. PREDNISOLONE. [Suspect]
     Active Substance: PREDNISOLONE
     Dosage: 25 MG, 1D
     Route: 048
     Dates: start: 20180713, end: 20180809
  19. PROGRAF [Suspect]
     Active Substance: TACROLIMUS\TACROLIMUS ANHYDROUS
     Indication: SYSTEMIC LUPUS ERYTHEMATOSUS
     Dosage: UNK
     Route: 048
     Dates: end: 2018
  20. CELLCEPT [Suspect]
     Active Substance: MYCOPHENOLATE MOFETIL\MYCOPHENOLATE MOFETIL HYDROCHLORIDE
     Indication: SYSTEMIC LUPUS ERYTHEMATOSUS
     Dosage: UNK
     Route: 048
     Dates: end: 2018
  21. BONALON [Concomitant]
     Active Substance: ALENDRONATE SODIUM
     Indication: OSTEOPOROSIS PROPHYLAXIS
     Dosage: UNK
  22. PITAVASTATIN CALCIUM [Concomitant]
     Active Substance: PITAVASTATIN CALCIUM
     Dosage: UNK
  23. CARVEDILOL. [Concomitant]
     Active Substance: CARVEDILOL
     Dosage: UNK
  24. INSULIN GLARGINE (GENETICAL RECOMBINATION) [Concomitant]
     Active Substance: INSULIN GLARGINE
     Dosage: UNK
  25. BELIMUMAB [Suspect]
     Active Substance: BELIMUMAB
     Indication: SYSTEMIC LUPUS ERYTHEMATOSUS
     Dosage: 10 MG/KG, EVERY TWO WEEKS
     Route: 041
     Dates: start: 20180223, end: 2018
  26. PLAQUENIL [Suspect]
     Active Substance: HYDROXYCHLOROQUINE SULFATE
     Indication: SYSTEMIC LUPUS ERYTHEMATOSUS
     Dosage: UNK
     Route: 048
  27. NOVORAPID [Concomitant]
     Active Substance: INSULIN ASPART
     Dosage: UNK
  28. AZILVA [Concomitant]
     Active Substance: AZILSARTAN KAMEDOXOMIL
     Dosage: UNK
  29. VALIXA [Concomitant]
     Active Substance: VALGANCICLOVIR
     Dosage: UNK
  30. HUMALOG [Concomitant]
     Active Substance: INSULIN LISPRO
     Dosage: UNK
  31. NOVOLIN R [Concomitant]
     Active Substance: INSULIN HUMAN
     Dosage: UNK
  32. BELIMUMAB [Suspect]
     Active Substance: BELIMUMAB
     Dosage: 10 MG/KG, EVERY FOUR WEEKS
     Route: 041
     Dates: start: 20180420
  33. FUROSEMIDE. [Suspect]
     Active Substance: FUROSEMIDE
     Indication: SYSTEMIC LUPUS ERYTHEMATOSUS
     Dosage: UNK
     Route: 048
  34. BAKTAR [Concomitant]
     Active Substance: SULFAMETHOXAZOLE\TRIMETHOPRIM
     Indication: ANTIFUNGAL PROPHYLAXIS
     Dosage: UNK
  35. TENELIA [Concomitant]
     Active Substance: TENELIGLIPTIN
     Dosage: UNK
  36. AMLODIPINE BESILATE [Concomitant]
     Active Substance: AMLODIPINE BESYLATE
     Dosage: UNK
  37. PERSANTINE [Concomitant]
     Active Substance: DIPYRIDAMOLE
     Indication: SYSTEMIC LUPUS ERYTHEMATOSUS
     Dosage: UNK
  38. FEBURIC [Concomitant]
     Active Substance: FEBUXOSTAT
     Dosage: UNK
  39. PREDNISOLONE. [Suspect]
     Active Substance: PREDNISOLONE
     Dosage: 50 MG, 1D
     Route: 048
     Dates: start: 20180308, end: 20180314
  40. PREDNISOLONE. [Suspect]
     Active Substance: PREDNISOLONE
     Dosage: 40 MG, 1D
     Route: 048
     Dates: start: 20180315, end: 20180328
  41. SPIRONOLACTONE. [Concomitant]
     Active Substance: SPIRONOLACTONE
     Indication: SYSTEMIC LUPUS ERYTHEMATOSUS
     Dosage: UNK

REACTIONS (1)
  - Pancreatitis acute [Recovering/Resolving]

NARRATIVE: CASE EVENT DATE: 20180329
